FAERS Safety Report 5127957-8 (Version None)
Quarter: 2006Q4

REPORT INFORMATION
  Report Type: 
  Country: None (occurrence: None)
  Receive Date: 20061013
  Receipt Date: 20061013
  Transmission Date: 20070319
  Serious: Yes (Other)
  Sender: FDA-Public Use
  Company Number: None

PATIENT
  Age: 67 Year
  Sex: Female

DRUGS (5)
  1. ZYPREXA [Suspect]
     Indication: INSOMNIA
     Dosage: 1 QHS PO
     Route: 048
     Dates: start: 20060716
  2. MAXZIDE [Concomitant]
  3. OXYBUTYNIN [Concomitant]
  4. LORAZEPAM [Concomitant]
  5. PHENERGAN [Concomitant]

REACTIONS (3)
  - DISORIENTATION [None]
  - DYSPHAGIA [None]
  - DYSURIA [None]
